FAERS Safety Report 17294089 (Version 1)
Quarter: 2020Q1

REPORT INFORMATION
  Report Type: Spontaneous
  Country: US (occurrence: US)
  Receive Date: 20200120
  Receipt Date: 20200120
  Transmission Date: 20200409
  Serious: No
  Sender: FDA-Public Use
  Company Number: None

PATIENT
  Age: 38 Year
  Sex: Female

DRUGS (13)
  1. GABEPENTIN [Concomitant]
  2. MIRENA [Concomitant]
     Active Substance: LEVONORGESTREL
  3. METHYLPHENIDATE. [Concomitant]
     Active Substance: METHYLPHENIDATE
  4. TOPIRAMATE. [Concomitant]
     Active Substance: TOPIRAMATE
  5. VITAMIN D3 [Concomitant]
     Active Substance: CHOLECALCIFEROL
  6. FIORINAL [Concomitant]
     Active Substance: ASPIRIN\BUTALBITAL\CAFFEINE
  7. METOPROLOL. [Concomitant]
     Active Substance: METOPROLOL
  8. RIZATRIPTAN, [Concomitant]
  9. PYRIDOXINE [Concomitant]
     Active Substance: PYRIDOXINE
  10. OCREVUS [Suspect]
     Active Substance: OCRELIZUMAB
     Indication: MULTIPLE SCLEROSIS
     Dates: start: 20191025, end: 20200120
  11. OTEZLA [Concomitant]
     Active Substance: APREMILAST
  12. TRAMADOL. [Concomitant]
     Active Substance: TRAMADOL
  13. DULOXITINE [Concomitant]
     Active Substance: DULOXETINE

REACTIONS (1)
  - Alopecia [None]

NARRATIVE: CASE EVENT DATE: 20191201
